FAERS Safety Report 6815033-5 (Version None)
Quarter: 2010Q2

REPORT INFORMATION
  Report Type: 
  Country: None (occurrence: None)
  Receive Date: 20100629
  Receipt Date: 20100623
  Transmission Date: 20101027
  Serious: Yes (Life-Threatening, Hospitalization)
  Sender: FDA-Public Use
  Company Number: 7008748

PATIENT
  Age: 32 Year
  Sex: Female

DRUGS (3)
  1. GONAL-F [Suspect]
     Indication: DRUG USE FOR UNKNOWN INDICATION
     Dosage: 75 IU
  2. CHORIONIC GONADOTROPIN [Suspect]
     Indication: DRUG USE FOR UNKNOWN INDICATION
     Dosage: 5000 IU, SUBCUTANEOUS
     Route: 058
  3. PROGEFFIK (PROGESTERONE) [Suspect]
     Indication: LUTEAL PHASE DEFICIENCY
     Dosage: TRANSVAGINAL

REACTIONS (3)
  - DRUG EXPOSURE DURING PREGNANCY [None]
  - MULTIPLE PREGNANCY [None]
  - RUPTURED ECTOPIC PREGNANCY [None]
